FAERS Safety Report 10655462 (Version 1)
Quarter: 2014Q4

REPORT INFORMATION
  Report Type: Spontaneous
  Country: IT (occurrence: IT)
  Receive Date: 20141216
  Receipt Date: 20141216
  Transmission Date: 20150529
  Serious: Yes (Hospitalization)
  Sender: FDA-Public Use
  Company Number: IT-ASTRAZENECA-2014SE95406

PATIENT
  Age: 19565 Day
  Sex: Male

DRUGS (5)
  1. DUOPLAVIN (ASA+ CLOPIDOGREL) [Concomitant]
  2. TORVAST [Suspect]
     Active Substance: ATORVASTATIN
     Route: 065
  3. MICARDISPLUS (NON AZ PRODUCT) [Suspect]
     Active Substance: HYDROCHLOROTHIAZIDE\TELMISARTAN
     Route: 065
  4. SINTROM (ACENOCUMAROLO) [Concomitant]
  5. TENORMIN [Suspect]
     Active Substance: ATENOLOL
     Route: 048

REACTIONS (2)
  - Rectal haemorrhage [Not Recovered/Not Resolved]
  - Abdominal pain [Not Recovered/Not Resolved]

NARRATIVE: CASE EVENT DATE: 20140912
